FAERS Safety Report 6631158-1 (Version None)
Quarter: 2010Q1

REPORT INFORMATION
  Report Type: 
  Country: None (occurrence: None)
  Receive Date: 20100309
  Receipt Date: 20100223
  Transmission Date: 20100710
  Serious: Yes (Other)
  Sender: FDA-Public Use
  Company Number: 231910J10USA

PATIENT
  Age: 55 Year
  Sex: Female
  Weight: 96 kg

DRUGS (9)
  1. REBIF [Suspect]
     Indication: MULTIPLE SCLEROSIS
     Dosage: 44 MCG, 3 IN 1 WEEKS, SUBCUTANEOUS
     Route: 058
     Dates: start: 20090223
  2. INSULIN (INSULIN) [Concomitant]
  3. INDURAL (ALL OTHER THERAPEUTIC PRODUCTS) [Concomitant]
  4. LISINOPRIL [Concomitant]
  5. SYNTHROID [Concomitant]
  6. CELEXA [Concomitant]
  7. WELLBUTRIN [Concomitant]
  8. VITAMIN D [Concomitant]
  9. LOPID [Concomitant]

REACTIONS (1)
  - CATARACT [None]
